FAERS Safety Report 14728482 (Version 1)
Quarter: 2018Q2

REPORT INFORMATION
  Report Type: Report from Study
  Country: ES (occurrence: ES)
  Receive Date: 20180406
  Receipt Date: 20180406
  Transmission Date: 20180711
  Serious: Yes (Hospitalization)
  Sender: FDA-Public Use
  Company Number: ES-TAKEDA-2018MPI003432

PATIENT
  Age: 78 Year
  Sex: Female

DRUGS (4)
  1. DECADRON [Suspect]
     Active Substance: DEXAMETHASONE
     Indication: PLASMA CELL MYELOMA
     Dosage: 20 MG, 1/WEEK
     Route: 048
     Dates: start: 20171016
  2. IXAZOMIB [Suspect]
     Active Substance: IXAZOMIB
     Indication: PLASMA CELL MYELOMA
     Dosage: 3 MG, UNK
     Route: 048
     Dates: start: 20171120, end: 20180101
  3. IXAZOMIB [Suspect]
     Active Substance: IXAZOMIB
     Dosage: 2.3 MG, UNK
     Route: 048
     Dates: start: 20180122
  4. REVLIMID [Suspect]
     Active Substance: LENALIDOMIDE
     Indication: PLASMA CELL MYELOMA
     Dosage: 25 MG, UNK
     Route: 048
     Dates: start: 20171016

REACTIONS (2)
  - Lumbar vertebral fracture [Not Recovered/Not Resolved]
  - Respiratory tract infection [Recovered/Resolved]

NARRATIVE: CASE EVENT DATE: 20180110
